FAERS Safety Report 10083351 (Version 1)
Quarter: 2014Q2

REPORT INFORMATION
  Report Type: Spontaneous
  Country: US (occurrence: None)
  Receive Date: 20140415
  Receipt Date: 20140415
  Transmission Date: 20141212
  Serious: No
  Sender: FDA-Public Use
  Company Number: None

PATIENT
  Age: 60 Year
  Sex: Female
  Weight: 97.52 kg

DRUGS (1)
  1. AZITHROMYCIN 250MG TEVA [Suspect]
     Indication: EAR INFECTION
     Dosage: 2 TAB DAY ONE, THEN 1/DAY
     Route: 048
     Dates: start: 20140413, end: 20140414

REACTIONS (1)
  - Tinnitus [None]
